FAERS Safety Report 23086492 (Version 2)
Quarter: 2023Q4

REPORT INFORMATION
  Report Type: Report from Study
  Country: US (occurrence: US)
  Receive Date: 20231019
  Receipt Date: 20231031
  Transmission Date: 20240110
  Serious: No
  Sender: FDA-Public Use
  Company Number: US-ABBVIE-5454932

PATIENT
  Sex: Male
  Weight: 83 kg

DRUGS (1)
  1. IMBRUVICA [Suspect]
     Active Substance: IBRUTINIB
     Indication: B-cell small lymphocytic lymphoma
     Route: 048
     Dates: start: 202309

REACTIONS (2)
  - Tremor [Unknown]
  - Memory impairment [Unknown]

NARRATIVE: CASE EVENT DATE: 20230101
